FAERS Safety Report 9457204 (Version 1)
Quarter: 2013Q3

REPORT INFORMATION
  Report Type: Spontaneous
  Country: US (occurrence: US)
  Receive Date: 20130814
  Receipt Date: 20130814
  Transmission Date: 20140515
  Serious: Yes (Hospitalization, Other)
  Sender: FDA-Public Use
  Company Number: US-ASTRAZENECA-2013SE62174

PATIENT
  Age: 22 Year
  Sex: Male

DRUGS (2)
  1. QUETIAPINE [Suspect]
     Indication: BIPOLAR DISORDER
     Route: 048
  2. CARBAMAZEPINE [Suspect]
     Indication: BIPOLAR DISORDER

REACTIONS (7)
  - Unresponsive to stimuli [Recovering/Resolving]
  - Depressed level of consciousness [Recovering/Resolving]
  - Grand mal convulsion [Recovering/Resolving]
  - Ileus paralytic [Recovered/Resolved]
  - Tachycardia [Recovering/Resolving]
  - Pyrexia [Recovering/Resolving]
  - Mucosal dryness [Recovering/Resolving]
